FAERS Safety Report 25689433 (Version 1)
Quarter: 2025Q3

REPORT INFORMATION
  Report Type: Spontaneous
  Country: TH (occurrence: TH)
  Receive Date: 20250818
  Receipt Date: 20250818
  Transmission Date: 20251020
  Serious: Yes (Hospitalization)
  Sender: ACS DOBFAR
  Company Number: TH-ACS-20250434

PATIENT
  Age: 65 Year
  Sex: Male

DRUGS (1)
  1. IMIPENEM AND CILASTATIN [Suspect]
     Active Substance: CILASTATIN SODIUM\IMIPENEM
     Indication: Therapeutic embolisation
     Route: 013

REACTIONS (2)
  - Peripheral ischaemia [Recovering/Resolving]
  - Off label use [Recovering/Resolving]
